FAERS Safety Report 9871883 (Version 2)
Quarter: 2014Q2

REPORT INFORMATION
  Report Type: Spontaneous
  Country: US (occurrence: US)
  Receive Date: 20140205
  Receipt Date: 20140430
  Transmission Date: 20141212
  Serious: Yes (Other)
  Sender: FDA-Public Use
  Company Number: US-GILEAD-2014-0093716

PATIENT
  Age: 73 Year
  Sex: Female

DRUGS (2)
  1. LETAIRIS [Suspect]
     Indication: PULMONARY HYPERTENSION
     Dosage: 5 MG, QD
     Route: 065
     Dates: start: 20110113
  2. LETAIRIS [Suspect]
     Indication: RHEUMATOID ARTHRITIS

REACTIONS (2)
  - Sudden onset of sleep [Unknown]
  - Dizziness [Unknown]
